FAERS Safety Report 10913747 (Version 1)
Quarter: 2015Q1

REPORT INFORMATION
  Report Type: Spontaneous
  Country: DE (occurrence: DE)
  Receive Date: 20150313
  Receipt Date: 20150313
  Transmission Date: 20150721
  Serious: Yes (Hospitalization, Other)
  Sender: FDA-Public Use
  Company Number: DE-ROXANE LABORATORIES, INC.-2015-RO-00438RO

PATIENT
  Age: 52 Year
  Sex: Female

DRUGS (2)
  1. ZOLPIDEM [Suspect]
     Active Substance: ZOLPIDEM\ZOLPIDEM TARTRATE
     Indication: PRODUCT USED FOR UNKNOWN INDICATION
     Route: 065
     Dates: start: 201202
  2. LORAZEPAM. [Concomitant]
     Active Substance: LORAZEPAM
     Route: 065
     Dates: start: 201202

REACTIONS (9)
  - Rash [None]
  - Hyperkalaemia [Recovered/Resolved]
  - Drug dependence [Recovered/Resolved]
  - Pulmonary congestion [None]
  - Withdrawal syndrome [Recovered/Resolved]
  - Cardiomyopathy [None]
  - Electrocardiogram J wave [None]
  - Hyponatraemia [Recovered/Resolved]
  - Pulmonary oedema [None]
